FAERS Safety Report 7714078-0 (Version None)
Quarter: 2011Q3

REPORT INFORMATION
  Report Type: 
  Country: None (occurrence: None)
  Receive Date: 20110826
  Receipt Date: 20110118
  Transmission Date: 20111222
  Serious: Yes (Other)
  Sender: FDA-Public Use
  Company Number: JP-SANTEN INC.-INC-11-000028

PATIENT
  Age: 27 Year
  Sex: Female

DRUGS (2)
  1. LEVOFLOXACIN [Suspect]
     Indication: CONJUNCTIVITIS BACTERIAL
     Route: 047
     Dates: start: 20090701
  2. BETAMETHASONE SODIUM PHOSPHATE_FRADIOMYCIN SULFATE [Concomitant]
     Route: 047

REACTIONS (4)
  - URTICARIA [None]
  - SNEEZING [None]
  - RHINORRHOEA [None]
  - DYSPNOEA [None]
